FAERS Safety Report 21505170 (Version 1)
Quarter: 2022Q4

REPORT INFORMATION
  Report Type: Spontaneous
  Country: US (occurrence: US)
  Receive Date: 20221026
  Receipt Date: 20221026
  Transmission Date: 20230112
  Serious: No
  Sender: FDA-Public Use
  Company Number: US-ELI_LILLY_AND_COMPANY-US202210007049

PATIENT
  Age: 58 Year
  Sex: Female

DRUGS (3)
  1. TRULICITY [Suspect]
     Active Substance: DULAGLUTIDE
     Indication: Diabetes mellitus
     Dosage: 1.5 MG, UNKNOWN
     Route: 065
     Dates: start: 20221012
  2. BASAGLAR KWIKPEN [Concomitant]
     Active Substance: INSULIN GLARGINE
     Indication: Diabetes mellitus
     Dosage: 45 U, DAILY (AT NIGHT)
     Route: 065
     Dates: start: 20221012
  3. HUMALOG [Concomitant]
     Active Substance: INSULIN LISPRO
     Indication: Diabetes mellitus
     Dosage: 5 U, OTHER (BEFORE MEALS, ON SLIDING SCALE)
     Route: 065
     Dates: start: 20221012

REACTIONS (2)
  - Feeling abnormal [Unknown]
  - Injection site pain [Recovered/Resolved]

NARRATIVE: CASE EVENT DATE: 20221012
